FAERS Safety Report 6254212-5 (Version None)
Quarter: 2009Q2

REPORT INFORMATION
  Report Type: 
  Country: None (occurrence: None)
  Receive Date: 20090630
  Receipt Date: 20080815
  Transmission Date: 20091009
  Serious: Yes (Hospitalization)
  Sender: FDA-Public Use
  Company Number: US-SEPTODONT-200800159

PATIENT

DRUGS (1)
  1. SEPTOCAINE [Suspect]
     Indication: LOCAL ANAESTHESIA
     Dosage: PARENTERAL
     Route: 051

REACTIONS (3)
  - DIZZINESS [None]
  - NAUSEA [None]
  - VERTIGO [None]
